FAERS Safety Report 7000102-X (Version None)
Quarter: 2010Q3

REPORT INFORMATION
  Report Type: 
  Country: None (occurrence: None)
  Receive Date: 20100920
  Receipt Date: 20100701
  Transmission Date: 20110219
  Serious: No
  Sender: FDA-Public Use
  Company Number: US-ASTRAZENECA-2007UW27693

PATIENT
  Age: 13640 Day
  Sex: Male
  Weight: 96.2 kg

DRUGS (9)
  1. SEROQUEL [Suspect]
     Indication: DEPRESSION
     Route: 048
     Dates: start: 20000301, end: 20010801
  2. SEROQUEL [Suspect]
     Indication: SCHIZOPHRENIA
     Route: 048
     Dates: start: 20000301, end: 20010801
  3. RISPERDAL [Concomitant]
     Indication: DEPRESSION
     Dates: start: 20030428, end: 20031024
  4. RISPERDAL [Concomitant]
     Indication: SCHIZOPHRENIA
     Dates: start: 20030428, end: 20031024
  5. ABILIFY [Concomitant]
     Dates: start: 20041019, end: 20080114
  6. CLOZARIL [Concomitant]
     Dates: start: 19980421, end: 19990217
  7. GEODON [Concomitant]
     Dates: start: 20031024, end: 20040710
  8. HALDOL [Concomitant]
     Dates: start: 19980429, end: 19980826
  9. THORAZINE [Concomitant]
     Dates: start: 19881209

REACTIONS (3)
  - DIABETIC COMPLICATION [None]
  - OBESITY [None]
  - TYPE 2 DIABETES MELLITUS [None]
